FAERS Safety Report 4316447-8 (Version None)
Quarter: 2004Q1

REPORT INFORMATION
  Report Type: 
  Country: None (occurrence: None)
  Receive Date: 20040311
  Receipt Date: 20040225
  Transmission Date: 20041129
  Serious: Yes (Disabling)
  Sender: FDA-Public Use
  Company Number: J200401034

PATIENT
  Age: 92 Year
  Sex: Female

DRUGS (5)
  1. (MYSLEE) ZOLPIDEM TABLET 10MG [Suspect]
     Indication: INSOMNIA
     Dosage: 10MG PO
     Route: 048
     Dates: start: 20030518
  2. GASTER D (PAMOTIDINE) [Concomitant]
  3. MUCOSTA (REBAMIPIDE) [Concomitant]
  4. GASMOTIN (MOSAPRIDE CITRATE) [Concomitant]
  5. SELBEX (TEPRENONE) [Concomitant]

REACTIONS (12)
  - ANOREXIA [None]
  - BLOOD ALBUMIN DECREASED [None]
  - BLOOD CREATINE INCREASED [None]
  - BLOOD PRESSURE DECREASED [None]
  - BLOOD UREA INCREASED [None]
  - DELIRIUM [None]
  - GASTRIC ULCER HAEMORRHAGE [None]
  - HAEMATOCRIT DECREASED [None]
  - HAEMOGLOBIN DECREASED [None]
  - MALNUTRITION [None]
  - PROTEIN TOTAL DECREASED [None]
  - RED BLOOD CELL COUNT DECREASED [None]
